FAERS Safety Report 24019942 (Version 1)
Quarter: 2024Q2

REPORT INFORMATION
  Report Type: Spontaneous
  Country: US (occurrence: US)
  Receive Date: 20240627
  Receipt Date: 20240627
  Transmission Date: 20240716
  Serious: Yes (Life-Threatening, Other)
  Sender: FDA-Public Use
  Company Number: US-SANDOZ-SDZ2024US060988

PATIENT
  Age: 4 Year
  Sex: Female

DRUGS (2)
  1. FERUMOXYTOL [Suspect]
     Active Substance: FERUMOXYTOL
     Dosage: 15 MG  OF FERUMOXYTOL OVER 4 MIN SINCE INITIATION OF THE INFUSION
     Route: 042
  2. FERUMOXYTOL [Suspect]
     Active Substance: FERUMOXYTOL
     Indication: Product used for unknown indication
     Dosage: SLOW INFUSION OF 0.06 MG/S OF 57 MG (4 MG/KG)
     Route: 042

REACTIONS (3)
  - Anaphylactic reaction [Unknown]
  - Product use in unapproved indication [Unknown]
  - Product use issue [Unknown]
